FAERS Safety Report 9285389 (Version 1)
Quarter: 2013Q2

REPORT INFORMATION
  Report Type: Spontaneous
  Country: DE (occurrence: None)
  Receive Date: 20130506
  Receipt Date: 20130506
  Transmission Date: 20140414
  Serious: Yes (Hospitalization)
  Sender: FDA-Public Use
  Company Number: GER/GER/13/0029285

PATIENT
  Age: 62 Year
  Sex: Male

DRUGS (9)
  1. SIMVABETA [Suspect]
     Indication: PRODUCT USED FOR UNKNOWN INDICATION
     Route: 048
  2. PROTHAPHANE(INSULIN HUMAN INJECTION, ISOPHANE) [Concomitant]
  3. ACTRAPID(INSULIN HUMAN) [Concomitant]
  4. FALITHROM(PHENPROCOUMON) [Concomitant]
  5. VOTUM(OLMESARTAN MEDOXOMIL) [Concomitant]
  6. CARMEN(CARBOPLATIN) [Concomitant]
  7. CELIPROLOL(CELIPROLOL HYDROCHLORIDE) [Concomitant]
  8. LYRICA(PREGABALIN) [Concomitant]
  9. TAVOR(LORAZEPAM) [Concomitant]

REACTIONS (2)
  - Rhabdomyolysis [None]
  - Myositis [None]
